FAERS Safety Report 5204940-5 (Version None)
Quarter: 2007Q1

REPORT INFORMATION
  Report Type: 
  Country: None (occurrence: None)
  Receive Date: 20070110
  Receipt Date: 20060908
  Transmission Date: 20070707
  Serious: Yes (Other)
  Sender: FDA-Public Use
  Company Number: US-BRISTOL-MYERS SQUIBB COMPANY-13503735

PATIENT
  Age: 22 Year
  Sex: Male

DRUGS (5)
  1. ABILIFY [Suspect]
     Indication: SCHIZOPHRENIA
     Route: 048
     Dates: end: 20060818
  2. ABILIFY [Suspect]
     Indication: DEPRESSIVE SYMPTOM
     Route: 048
     Dates: end: 20060818
  3. LEXAPRO [Suspect]
     Indication: SCHIZOPHRENIA
     Route: 048
  4. LEXAPRO [Suspect]
     Indication: DEPRESSIVE SYMPTOM
     Route: 048
  5. COGENTIN [Concomitant]

REACTIONS (2)
  - ALANINE AMINOTRANSFERASE INCREASED [None]
  - ASPARTATE AMINOTRANSFERASE INCREASED [None]
